FAERS Safety Report 18654402 (Version 1)
Quarter: 2020Q4

REPORT INFORMATION
  Report Type: Spontaneous
  Country: US (occurrence: US)
  Receive Date: 20201223
  Receipt Date: 20201223
  Transmission Date: 20210114
  Serious: No
  Sender: FDA-Public Use
  Company Number: None

PATIENT
  Age: 43 Year
  Sex: Female
  Weight: 85.5 kg

DRUGS (4)
  1. B VITAMIN [Concomitant]
  2. VICTOZA [Suspect]
     Active Substance: LIRAGLUTIDE
     Indication: TYPE 2 DIABETES MELLITUS
     Dosage: ?          QUANTITY:1 SYRINGE;?
     Route: 058
     Dates: start: 20201216, end: 20201218
  3. GLIPIZIDE. [Concomitant]
     Active Substance: GLIPIZIDE
  4. MAGNESIUM [Concomitant]
     Active Substance: MAGNESIUM

REACTIONS (3)
  - Device issue [None]
  - Blood glucose increased [None]
  - Device defective [None]

NARRATIVE: CASE EVENT DATE: 20201217
